FAERS Safety Report 7831354-1 (Version None)
Quarter: 2011Q4

REPORT INFORMATION
  Report Type: 
  Country: None (occurrence: None)
  Receive Date: 20111021
  Receipt Date: 20111010
  Transmission Date: 20120403
  Serious: Yes (Hospitalization, Disabling)
  Sender: FDA-Public Use
  Company Number: AT-ELI_LILLY_AND_COMPANY-AT201110002126

PATIENT
  Age: 52 Year
  Sex: Male
  Weight: 108 kg

DRUGS (3)
  1. AVASTIN [Concomitant]
     Indication: CHEMOTHERAPY
     Dosage: 7.5 MG/KG, UNK
     Dates: start: 20110324, end: 20110921
  2. ALIMTA [Suspect]
     Indication: CHEMOTHERAPY
     Dosage: 500 MG/M2, UNK
     Dates: start: 20110324, end: 20110713
  3. CARBOPLATIN [Concomitant]
     Indication: CHEMOTHERAPY
     Dosage: UNK
     Route: 042
     Dates: start: 20110324, end: 20110713

REACTIONS (1)
  - CARDIAC FAILURE [None]
